FAERS Safety Report 21887734 (Version 1)
Quarter: 2023Q1

REPORT INFORMATION
  Report Type: Report from Study
  Country: US (occurrence: US)
  Receive Date: 20230120
  Receipt Date: 20230120
  Transmission Date: 20230417
  Serious: No
  Sender: FDA-Public Use
  Company Number: US-ABBVIE-22K-163-4436594-00

PATIENT
  Age: 17 Year
  Sex: Male

DRUGS (3)
  1. SKYRIZI [Suspect]
     Active Substance: RISANKIZUMAB-RZAA
     Indication: Psoriasis
     Dosage: TIME INTERVAL: 1 TOTAL: WEEK 0
     Route: 058
     Dates: start: 2022, end: 20220526
  2. SKYRIZI [Suspect]
     Active Substance: RISANKIZUMAB-RZAA
     Dosage: TIME INTERVAL: 1 TOTAL: WEEK 4
     Route: 058
     Dates: start: 2022, end: 202206
  3. SKYRIZI [Suspect]
     Active Substance: RISANKIZUMAB-RZAA
     Route: 058
     Dates: start: 20220526

REACTIONS (5)
  - Pain [Unknown]
  - Erythema [Unknown]
  - Pruritus [Unknown]
  - Burning sensation [Unknown]
  - Off label use [Unknown]

NARRATIVE: CASE EVENT DATE: 20220526
